FAERS Safety Report 16457650 (Version 1)
Quarter: 2019Q2

REPORT INFORMATION
  Report Type: Spontaneous
  Country: US (occurrence: US)
  Receive Date: 20190510
  Receipt Date: 20190510
  Transmission Date: 20190711
  Serious: Yes (Hospitalization)
  Sender: FDA-Public Use
  Company Number: None

PATIENT
  Age: 86 Year
  Sex: Male

DRUGS (2)
  1. XARELTO [Suspect]
     Active Substance: RIVAROXABAN
  2. REVLIMID [Concomitant]
     Active Substance: LENALIDOMIDE

REACTIONS (3)
  - Hypotension [None]
  - Haemoglobin decreased [None]
  - Internal haemorrhage [None]

NARRATIVE: CASE EVENT DATE: 20190422
